FAERS Safety Report 18799220 (Version 2)
Quarter: 2021Q1

REPORT INFORMATION
  Report Type: Spontaneous
  Country: NL (occurrence: NL)
  Receive Date: 20210128
  Receipt Date: 20210215
  Transmission Date: 20210419
  Serious: Yes (Life-Threatening, Hospitalization, Other)
  Sender: FDA-Public Use
  Company Number: NL-ACCORD-215771

PATIENT
  Age: 72 Year
  Sex: Male

DRUGS (10)
  1. QUETIAPINE. [Interacting]
     Active Substance: QUETIAPINE
     Indication: ANXIETY
  2. LORAZEPAM. [Concomitant]
     Active Substance: LORAZEPAM
     Indication: ANXIETY
  3. PACLITAXEL/PACLITAXEL LIPOSOME [Suspect]
     Active Substance: PACLITAXEL
     Indication: OESOPHAGEAL SQUAMOUS CELL CARCINOMA
     Dates: start: 201903
  4. ROSUVASTATIN/ROSUVASTATIN CALCIUM [Concomitant]
     Active Substance: ROSUVASTATIN CALCIUM
  5. ASCAL [Concomitant]
     Dosage: POWDER ONCE A DAY
  6. PERINDOPRIL [Concomitant]
     Active Substance: PERINDOPRIL
  7. NADROPARIN [Concomitant]
     Active Substance: NADROPARIN
     Dosage: 2DD1 7600IE, THERAPEUTIC DOSE
  8. AMIODARONE [Concomitant]
     Active Substance: AMIODARONE
  9. CARBOPLATIN. [Suspect]
     Active Substance: CARBOPLATIN
     Indication: OESOPHAGEAL SQUAMOUS CELL CARCINOMA
     Dates: start: 201903
  10. RIVAROXABAN [Interacting]
     Active Substance: RIVAROXABAN
     Indication: PULMONARY EMBOLISM

REACTIONS (6)
  - Dyspnoea [Recovering/Resolving]
  - Chest pain [Recovering/Resolving]
  - Hypotension [Unknown]
  - Pericardial effusion [Recovered/Resolved]
  - Drug interaction [Unknown]
  - Pericardial haemorrhage [Recovering/Resolving]

NARRATIVE: CASE EVENT DATE: 201903
